FAERS Safety Report 6063726-2 (Version None)
Quarter: 2009Q1

REPORT INFORMATION
  Report Type: 
  Country: None (occurrence: None)
  Receive Date: 20090130
  Receipt Date: 20090122
  Transmission Date: 20090719
  Serious: Yes (Hospitalization, Other)
  Sender: FDA-Public Use
  Company Number: 2008SP022262

PATIENT
  Age: 43 Year
  Sex: Male
  Weight: 83.4 kg

DRUGS (4)
  1. PEG-INTRON [Suspect]
     Indication: HEPATITIS C
     Dosage: SC; SC
     Route: 058
     Dates: start: 20081028, end: 20081107
  2. PEG-INTRON [Suspect]
     Indication: HEPATITIS C
     Dosage: SC; SC
     Route: 058
     Dates: start: 20081108
  3. REBETOL [Suspect]
     Indication: HEPATITIS C
     Dosage: PO
     Route: 048
     Dates: start: 20081028, end: 20081104
  4. INVESTIGATIONAL DRUG [Suspect]
     Indication: HEPATITIS C
     Dates: start: 20080314

REACTIONS (1)
  - APPENDICITIS [None]
